FAERS Safety Report 5178059-6 (Version None)
Quarter: 2006Q4

REPORT INFORMATION
  Report Type: 
  Country: None (occurrence: None)
  Receive Date: 20061208
  Receipt Date: 20061004
  Transmission Date: 20070319
  Serious: Yes (Death, Other)
  Sender: FDA-Public Use
  Company Number: 2006095883

PATIENT
  Age: 42 Year
  Sex: Male
  Weight: 115.6672 kg

DRUGS (3)
  1. CELEBREX [Suspect]
     Indication: ARTHRALGIA
     Dosage: 200MG-400MG (200 MG, FREQUENCY:  1-2X; INTERVAL:  DAILY), ORAL
     Route: 048
     Dates: start: 20030202, end: 20040515
  2. CELEBREX [Suspect]
     Indication: MUSCULOSKELETAL PAIN
     Dosage: 200MG-400MG (200 MG, FREQUENCY:  1-2X; INTERVAL:  DAILY), ORAL
     Route: 048
     Dates: start: 20030202, end: 20040515
  3. PERCOCET [Concomitant]

REACTIONS (1)
  - MYOCARDIAL INFARCTION [None]
